FAERS Safety Report 18302943 (Version 1)
Quarter: 2020Q3

REPORT INFORMATION
  Report Type: Spontaneous
  Country: FR (occurrence: FR)
  Receive Date: 20200924
  Receipt Date: 20200924
  Transmission Date: 20201103
  Serious: Yes (Other)
  Sender: FDA-Public Use
  Company Number: FR-AUROBINDO-AUR-APL-2014-13070

PATIENT
  Age: 72 Year
  Sex: Male

DRUGS (2)
  1. AZITHROMYCIN ANHYDROUS. [Suspect]
     Active Substance: AZITHROMYCIN ANHYDROUS
     Indication: LARYNGEAL INFLAMMATION
     Dosage: 500 MG, TWICE WEEKLY
     Route: 048
  2. AZITHROMYCIN ANHYDROUS. [Suspect]
     Active Substance: AZITHROMYCIN ANHYDROUS
     Indication: PROPHYLAXIS
     Dosage: 1000 MILLIGRAM ((500 MG MONDAY, 250 MG WEDNESDAY, 250 MG FRIDAY)
     Route: 065

REACTIONS (1)
  - Gastrointestinal disorder [Unknown]
